FAERS Safety Report 8936899 (Version 1)
Quarter: 2012Q4

REPORT INFORMATION
  Report Type: 
  Country: DE (occurrence: DE)
  Receive Date: 20121130
  Receipt Date: 20121130
  Transmission Date: 20130627
  Serious: Yes (Other)
  Sender: FDA-Public Use
  Company Number: PHHY2012DE106142

PATIENT
  Age: 13 Month
  Sex: Female
  Weight: 9.4 kg

DRUGS (1)
  1. CLOZAPINE [Suspect]

REACTIONS (20)
  - Coma [Unknown]
  - Miosis [Unknown]
  - Altered state of consciousness [Unknown]
  - Acute respiratory failure [Unknown]
  - Tachypnoea [Unknown]
  - Cyanosis [Unknown]
  - Rhonchi [Unknown]
  - Encephalopathy [Unknown]
  - Atelectasis [Unknown]
  - Upper respiratory tract infection [Unknown]
  - Toxicity to various agents [Unknown]
  - C-reactive protein increased [Unknown]
  - Tachycardia [Unknown]
  - Antipsychotic drug level increased [Unknown]
  - Neutrophilia [Unknown]
  - Leukocytosis [Unknown]
  - Dysarthria [Unknown]
  - Somnolence [Unknown]
  - Agitation [Unknown]
  - Sedation [Unknown]
